FAERS Safety Report 6629644 (Version 3)
Quarter: 2020Q1

REPORT INFORMATION
  Report Type: Spontaneous
  Country: IN (occurrence: IN)
  Receive Date: 20080430
  Receipt Date: 20200208
  Transmission Date: 20200409
  Serious: Yes (Other)
  Sender: FDA-Public Use
  Company Number: PHBS2008IN04185

PATIENT
  Sex: Female
  Weight: 1.6 kg

DRUGS (3)
  1. IRON SUPPLEMENTS [Concomitant]
     Active Substance: IRON
     Indication: PRENATAL CARE
     Dosage: MATERNAL DOSE: UNK, UNK
     Route: 064
     Dates: end: 200409
  2. FOLIC ACID. [Concomitant]
     Active Substance: FOLIC ACID
     Indication: PRENATAL CARE
     Dosage: MATERNAL DOSE: UNK, UNK
     Route: 064
     Dates: end: 200409
  3. IMATINIB. [Suspect]
     Active Substance: IMATINIB MESYLATE
     Indication: FOETAL EXPOSURE DURING PREGNANCY
     Dosage: MATERNAL DOSE: 30 MG, QD
     Route: 064
     Dates: end: 200404

REACTIONS (2)
  - Premature baby [Unknown]
  - Foetal exposure during pregnancy [Unknown]

NARRATIVE: CASE EVENT DATE: 200402
